FAERS Safety Report 4955183-1 (Version None)
Quarter: 2006Q1

REPORT INFORMATION
  Report Type: 
  Country: None (occurrence: None)
  Receive Date: 20060322
  Receipt Date: 20060313
  Transmission Date: 20060701
  Serious: Yes (Other)
  Sender: FDA-Public Use
  Company Number: 2006035555

PATIENT
  Age: 36 Year
  Sex: Female

DRUGS (2)
  1. DEPO-PROVERA [Suspect]
     Indication: CONTRACEPTION
     Dosage: 1ST INJECTION, INTRAMUSCULAR
     Route: 030
     Dates: start: 19950101, end: 20050101
  2. SYNTHROID [Suspect]
     Indication: THYROIDECTOMY
     Dosage: 0.3 MG (DAILY)
     Dates: start: 19950101

REACTIONS (4)
  - ARTHRALGIA [None]
  - DIFFICULTY IN WALKING [None]
  - OSTEOPENIA [None]
  - THYROIDECTOMY [None]
